FAERS Safety Report 5528928-X (Version None)
Quarter: 2007Q4

REPORT INFORMATION
  Report Type: 
  Country: None (occurrence: None)
  Receive Date: 20071129
  Receipt Date: 20071115
  Transmission Date: 20080405
  Serious: Yes (Death)
  Sender: FDA-Public Use
  Company Number: US-ELI_LILLY_AND_COMPANY-US200711002457

PATIENT
  Age: 22 Year
  Sex: Female

DRUGS (1)
  1. XIGRIS [Suspect]
     Indication: SEPTIC SHOCK
     Dosage: 24 D/F, UNK
     Route: 042
     Dates: start: 20071106, end: 20071106

REACTIONS (1)
  - STREPTOCOCCAL SEPSIS [None]
